FAERS Safety Report 10249286 (Version 1)
Quarter: 2014Q2

REPORT INFORMATION
  Report Type: Spontaneous
  Country: US (occurrence: None)
  Receive Date: 20140618
  Receipt Date: 20140618
  Transmission Date: 20141212
  Serious: Yes (Life-Threatening, Hospitalization)
  Sender: FDA-Public Use
  Company Number: None

PATIENT
  Age: 69 Year
  Sex: Male
  Weight: 93 kg

DRUGS (4)
  1. FARXIGA [Suspect]
     Indication: TYPE 2 DIABETES MELLITUS
     Route: 048
  2. ASPIRIN [Concomitant]
  3. LISINOPRIL-HYDROCHLOROTHIAZIDE [Concomitant]
  4. OMEPRAZOLE [Concomitant]

REACTIONS (2)
  - Pancreatitis acute [None]
  - Renal failure acute [None]
